FAERS Safety Report 8609806-6 (Version None)
Quarter: 2012Q3

REPORT INFORMATION
  Report Type: 
  Country: None (occurrence: None)
  Receive Date: 20120821
  Receipt Date: 20120813
  Transmission Date: 20120928
  Serious: Yes (Other)
  Sender: FDA-Public Use
  Company Number: CN-ABBOTT-12P-035-0968898-00

PATIENT
  Age: 24 Year
  Sex: Male

DRUGS (1)
  1. DEPAKENE [Suspect]
     Indication: EPILEPSY
     Dosage: 4 DOSAGE FORM DAILY, EXTENDED RELEASE
     Route: 048
     Dates: start: 20120429

REACTIONS (4)
  - MUSCLE SPASMS [None]
  - GAZE PALSY [None]
  - TONGUE BITING [None]
  - PETIT MAL EPILEPSY [None]
